FAERS Safety Report 7351981 (Version 2)
Quarter: 2014Q3

REPORT INFORMATION
  Report Type: Spontaneous
  Country: US (occurrence: None)
  Receive Date: 20100324
  Receipt Date: 20140730
  Transmission Date: 20150326
  Serious: Yes (Other)
  Sender: FDA-Public Use
  Company Number: 2010S1001630

PATIENT
  Age: 78 Year
  Sex: Female

DRUGS (7)
  1. FUROSEMIDE (FUROSEMIDE) (40 MILLIGRAM) [Concomitant]
  2. ECOTRIN (ACETYLSALICYLIC ACID) (81 MILLIGRAM) [Concomitant]
  3. VITAMIN D (ERGOCALCIFEROL) [Concomitant]
     Active Substance: ERGOCALCIFEROL
  4. PHOSPHO-SODA [Suspect]
     Active Substance: SODIUM PHOSPHATE, DIBASIC\SODIUM PHOSPHATE, MONOBASIC
     Indication: COLONOSCOPY
     Route: 048
     Dates: start: 20050721, end: 20050722
  5. AMLODIPINE (AMLODIPINE) (5 MILLIGRAM) [Concomitant]
  6. BENAZEPRIL (BENAZEPRIL) (30 MILLIGRAM) [Concomitant]
  7. ALLOPURINOL (ALLOPURINOL) (300 MILLIGRAM, TABLET) [Concomitant]

REACTIONS (9)
  - Renal disorder [None]
  - Glomerular filtration rate decreased [None]
  - Back pain [None]
  - Diverticulum [None]
  - Blood creatinine increased [None]
  - Pain in extremity [None]
  - Anaemia [None]
  - Haemorrhoids [None]
  - Hypertension [None]

NARRATIVE: CASE EVENT DATE: 2005
